FAERS Safety Report 13960887 (Version 1)
Quarter: 2017Q3

REPORT INFORMATION
  Report Type: Spontaneous
  Country: US (occurrence: US)
  Receive Date: 20170912
  Receipt Date: 20170912
  Transmission Date: 20171128
  Serious: Yes (Death, Hospitalization, Other)
  Sender: FDA-Public Use
  Company Number: US-PFIZER INC-3068985

PATIENT
  Age: 28 Week
  Sex: Female

DRUGS (7)
  1. HYDROCORTISONE. [Interacting]
     Active Substance: HYDROCORTISONE
     Indication: URINE OUTPUT
     Dosage: 0.25 MG/KG EVERY 6 HOURS
     Route: 042
  2. AMPICILLIN [Interacting]
     Active Substance: AMPICILLIN
     Indication: SEPSIS
     Dosage: 100 MG/KG, EVERY 12 HOURS
     Route: 042
  3. METOLAZONE. [Interacting]
     Active Substance: METOLAZONE
     Indication: URINE OUTPUT
     Dosage: 0.4 MG/KG/DAILY
     Route: 042
  4. BUMEX [Interacting]
     Active Substance: BUMETANIDE
     Indication: URINE OUTPUT
     Dosage: 0.01MG/KG/DAILY
     Route: 042
  5. GENTAMICIN SULFATE. [Suspect]
     Active Substance: GENTAMICIN SULFATE
     Indication: SEPSIS
     Dosage: 5 MG/KG/HR EVERY 48 HOURS
     Route: 042
  6. VECURONIUM BROMIDE. [Interacting]
     Active Substance: VECURONIUM BROMIDE
     Indication: PARALYSIS
     Dosage: 0.1MG/KG/HR FOR 7 DAYS
     Route: 041
  7. DOPAMINE HCL [Interacting]
     Active Substance: DOPAMINE HYDROCHLORIDE
     Indication: URINE OUTPUT
     Dosage: 5 MICROGRAM/KG/MIN

REACTIONS (3)
  - Renal failure [Fatal]
  - Potentiating drug interaction [Fatal]
  - Neuromuscular block prolonged [Fatal]
